FAERS Safety Report 8790242 (Version 1)
Quarter: 2012Q4

REPORT INFORMATION
  Report Type: 
  Country: US (occurrence: US)
  Receive Date: 20120917
  Receipt Date: 20120917
  Transmission Date: 20130627
  Serious: Yes (Other)
  Sender: FDA-Public Use
  Company Number: US-ELI_LILLY_AND_COMPANY-US201105006743

PATIENT
  Age: 47 None
  Sex: Female
  Weight: 95.7 kg

DRUGS (31)
  1. CYMBALTA [Suspect]
     Indication: FIBROMYALGIA
     Dosage: 60 mg, bid
     Route: 048
     Dates: start: 2008, end: 200806
  2. CYMBALTA [Suspect]
     Dosage: 60 mg, qd
     Dates: start: 2010, end: 201201
  3. LYRICA [Concomitant]
     Indication: FIBROMYALGIA
     Dosage: 75 mg, bid
     Dates: start: 2008, end: 200806
  4. GLATIRAMER [Concomitant]
     Indication: MULTIPLE SCLEROSIS
     Dosage: 40 mg, qd
  5. NUVIGIL [Concomitant]
     Dosage: 50 mg, qd
  6. NUVIGIL [Concomitant]
     Dosage: 250 mg, qd
  7. HYDROCODONE W/IBUPROFEN [Concomitant]
     Dosage: UNK
  8. LEVOTHYROXINE [Concomitant]
     Dosage: 88 ug, qd
  9. LEVOTHYROXINE [Concomitant]
     Dosage: 112 ug, qd
  10. FUROSEMIDE [Concomitant]
     Dosage: 30 mg, qd
  11. FUROSEMIDE [Concomitant]
     Dosage: 40 mg, qd
  12. NEXIUM [Concomitant]
     Dosage: 40 mg, bid
  13. FENTANYL [Concomitant]
     Dosage: 20 mg, qid
  14. FLEXERIL [Concomitant]
     Dosage: 40 mg, qd
  15. HYDROCODONE [Concomitant]
     Dosage: UNK
  16. TRIAZOLAM [Concomitant]
     Indication: SLEEP DISORDER
     Dosage: 0.50 mg, qd
     Dates: start: 2006
  17. TRIAZOLAM [Concomitant]
     Dosage: 1 DF, bid
  18. TRIAZOLAM [Concomitant]
     Dosage: 0.25 mg, qid
     Dates: start: 2006
  19. LISINOPRIL [Concomitant]
     Indication: HYPERTENSION
     Dosage: 20 mg, bid
  20. METHOCARBAMOL [Concomitant]
     Dosage: 500 mg, UNK
  21. MORPHINE [Concomitant]
     Dosage: 30 mg, unknown
  22. HYDROCODONE W/ACETAMINOPHEN [Concomitant]
     Dosage: 1 DF, bid
  23. NAPROXEN [Concomitant]
     Dosage: 500 mg, bid
  24. ONDANSETRON [Concomitant]
     Dosage: 8 mg, bid
  25. ADVAIR [Concomitant]
     Dosage: 1 DF, bid
  26. SALBUTAMOL [Concomitant]
     Dosage: 90 ug, prn
  27. XANAX [Concomitant]
     Indication: ANXIETY
     Dosage: 1 mg, tid
  28. ZOLOFT [Concomitant]
     Indication: DEPRESSION
     Dosage: 50 mg, qd
     Route: 048
  29. CARAFATE [Concomitant]
     Dosage: 1 DF, bid
  30. CREON [Concomitant]
     Dosage: 1 DF, bid
  31. INTERFERON BETA-1A [Concomitant]
     Indication: MULTIPLE SCLEROSIS
     Dosage: UNK
     Dates: start: 200807, end: 200907

REACTIONS (10)
  - Oesophageal rupture [Not Recovered/Not Resolved]
  - Weight increased [Recovered/Resolved]
  - Neck surgery [Unknown]
  - Diplopia [Recovering/Resolving]
  - Back disorder [Unknown]
  - Nerve compression [Unknown]
  - Intervertebral disc protrusion [Not Recovered/Not Resolved]
  - Eye pain [Not Recovered/Not Resolved]
  - Multiple sclerosis [Not Recovered/Not Resolved]
  - Pain [Not Recovered/Not Resolved]
